FAERS Safety Report 9286590 (Version 1)
Quarter: 2013Q2

REPORT INFORMATION
  Report Type: Other
  Country: DK (occurrence: DK)
  Receive Date: 20130513
  Receipt Date: 20130513
  Transmission Date: 20140414
  Serious: Yes (Other)
  Sender: FDA-Public Use
  Company Number: DK-WATSON-2011-24361

PATIENT
  Age: 18 Year
  Sex: Female
  Weight: 46 kg

DRUGS (1)
  1. CITALOPRAM HYDROBROMIDE (UNKNOWN) [Suspect]
     Indication: DEPRESSION
     Dosage: 20MG DAILY
     Route: 048
     Dates: start: 20061123

REACTIONS (2)
  - Foetal death [Not Recovered/Not Resolved]
  - Exposure during pregnancy [Recovered/Resolved]
